FAERS Safety Report 22745039 (Version 2)
Quarter: 2025Q2

REPORT INFORMATION
  Report Type: Spontaneous
  Country: PT (occurrence: PT)
  Receive Date: 20230725
  Receipt Date: 20250503
  Transmission Date: 20250717
  Serious: Yes (Hospitalization, Other)
  Sender: AUROBINDO
  Company Number: PT-BAYER-2023A091438

PATIENT
  Age: 54 Year
  Sex: Male

DRUGS (2)
  1. CIPROFLOXACIN [Suspect]
     Active Substance: CIPROFLOXACIN
     Indication: Respiratory symptom
     Route: 065
  2. CIPROFLOXACIN [Suspect]
     Active Substance: CIPROFLOXACIN
     Indication: Pyrexia

REACTIONS (10)
  - Dressler^s syndrome [Unknown]
  - Pericardial effusion [Unknown]
  - Infective aortitis [Unknown]
  - Dyspnoea at rest [Unknown]
  - Bacteraemia [Unknown]
  - Pyrexia [Unknown]
  - Night sweats [Unknown]
  - Myalgia [Unknown]
  - Pleural effusion [Unknown]
  - Cough [Unknown]
